FAERS Safety Report 6010318-7 (Version None)
Quarter: 2008Q4

REPORT INFORMATION
  Report Type: 
  Country: None (occurrence: None)
  Receive Date: 20081218
  Receipt Date: 20080618
  Transmission Date: 20090506
  Serious: No
  Sender: FDA-Public Use
  Company Number: A0734790A

PATIENT
  Age: 38 Year
  Sex: Female

DRUGS (10)
  1. FLONASE [Suspect]
     Indication: DRUG USE FOR UNKNOWN INDICATION
     Route: 045
  2. CLARITIN-D 24 HOUR [Suspect]
     Indication: DRUG USE FOR UNKNOWN INDICATION
  3. ZYRTEC [Suspect]
     Indication: DRUG USE FOR UNKNOWN INDICATION
  4. MUCINEX [Suspect]
  5. MUCINEX DM [Suspect]
     Indication: DRUG USE FOR UNKNOWN INDICATION
  6. CLARITIN-D [Suspect]
     Indication: DRUG USE FOR UNKNOWN INDICATION
  7. SUDAFED 12 HOUR [Suspect]
     Indication: DRUG USE FOR UNKNOWN INDICATION
  8. TYLENOL ALLERGY + SINUS [Suspect]
     Indication: DRUG USE FOR UNKNOWN INDICATION
  9. DIMETAPP [Suspect]
     Indication: DRUG USE FOR UNKNOWN INDICATION
  10. UNKNOWN MEDICATION [Suspect]

REACTIONS (4)
  - DRUG INEFFECTIVE [None]
  - EUPHORIC MOOD [None]
  - HEART RATE INCREASED [None]
  - HYPERSENSITIVITY [None]
